FAERS Safety Report 8912984 (Version 1)
Quarter: 2012Q4

REPORT INFORMATION
  Report Type: Spontaneous
  Country: US (occurrence: None)
  Receive Date: 20121114
  Receipt Date: 20121114
  Transmission Date: 20130627
  Serious: Yes (Disabling)
  Sender: FDA-Public Use
  Company Number: None

PATIENT
  Age: 68 Year
  Sex: Female
  Weight: 62.6 kg

DRUGS (1)
  1. EDARBI [Suspect]

REACTIONS (5)
  - Dizziness [None]
  - Blood pressure decreased [None]
  - Hyperhidrosis [None]
  - Nausea [None]
  - Syncope [None]
